FAERS Safety Report 9298941 (Version 5)
Quarter: 2014Q1

REPORT INFORMATION
  Report Type: Spontaneous
  Country: US (occurrence: US)
  Receive Date: 20130520
  Receipt Date: 20140117
  Transmission Date: 20141002
  Serious: Yes (Other)
  Sender: FDA-Public Use
  Company Number: US-BAYER-2013-060490

PATIENT
  Age: 61 Year
  Sex: Male
  Weight: 89.81 kg

DRUGS (2)
  1. ALEVE TABLET [Suspect]
     Indication: NECK PAIN
     Dosage: 1 DF, ONCE
     Route: 048
     Dates: start: 20130512, end: 20130512
  2. ALEVE CAPLET [Suspect]
     Dosage: UNK

REACTIONS (10)
  - Loss of consciousness [Recovered/Resolved]
  - Loss of consciousness [Recovered/Resolved]
  - Loss of consciousness [Recovered/Resolved]
  - Blood pressure decreased [Recovered/Resolved]
  - Dehydration [None]
  - Hyperhidrosis [Recovered/Resolved]
  - Hyperglycaemia [Unknown]
  - Drug hypersensitivity [Not Recovered/Not Resolved]
  - Hypokalaemia [Recovered/Resolved]
  - Syncope [None]
